FAERS Safety Report 14920934 (Version 1)
Quarter: 2018Q2

REPORT INFORMATION
  Report Type: Spontaneous
  Country: US (occurrence: US)
  Receive Date: 20180521
  Receipt Date: 20180521
  Transmission Date: 20180711
  Serious: Yes (Other)
  Sender: FDA-Public Use
  Company Number: US-GLAXOSMITHKLINE-US2018GSK089796

PATIENT
  Age: 76 Year
  Sex: Male

DRUGS (3)
  1. COMBIVENT [Suspect]
     Active Substance: ALBUTEROL SULFATE\IPRATROPIUM BROMIDE
     Indication: CHRONIC OBSTRUCTIVE PULMONARY DISEASE
     Dosage: UNK, QID
  2. ADVAIR DISKUS [Suspect]
     Active Substance: FLUTICASONE PROPIONATE\SALMETEROL XINAFOATE
     Indication: CHRONIC OBSTRUCTIVE PULMONARY DISEASE
     Dosage: UNK, BID
  3. PLAVIX [Concomitant]
     Active Substance: CLOPIDOGREL BISULFATE
     Indication: ANTICOAGULANT THERAPY

REACTIONS (9)
  - Total lung capacity decreased [Unknown]
  - Urinary incontinence [Unknown]
  - Vascular stent insertion [Unknown]
  - Emotional distress [Unknown]
  - Dyspnoea [Unknown]
  - Myocardial infarction [Unknown]
  - Chronic obstructive pulmonary disease [Unknown]
  - Dyspnoea exertional [Unknown]
  - Overweight [Unknown]
